FAERS Safety Report 16123921 (Version 1)
Quarter: 2019Q1

REPORT INFORMATION
  Report Type: Spontaneous
  Country: FR (occurrence: FR)
  Receive Date: 20190327
  Receipt Date: 20190327
  Transmission Date: 20190418
  Serious: Yes (Congenital Anomaly)
  Sender: FDA-Public Use
  Company Number: FR-PFIZER INC-2019124071

PATIENT
  Sex: Female
  Weight: 2.21 kg

DRUGS (4)
  1. SERTRALINE [Suspect]
     Active Substance: SERTRALINE HYDROCHLORIDE
     Dosage: UNK
     Route: 064
  2. LAMOTRIGINE. [Suspect]
     Active Substance: LAMOTRIGINE
     Indication: BIPOLAR DISORDER
     Dosage: UNK
     Route: 064
  3. DONORMYL [DOXYLAMINE SUCCINATE] [Suspect]
     Active Substance: DOXYLAMINE SUCCINATE
     Dosage: UNK
     Route: 064
  4. RISPERIDONE. [Suspect]
     Active Substance: RISPERIDONE
     Dosage: UNK
     Route: 063

REACTIONS (3)
  - Hemivertebra [Not Recovered/Not Resolved]
  - Maternal exposure during pregnancy [Unknown]
  - Oesophageal atresia [Recovered/Resolved]

NARRATIVE: CASE EVENT DATE: 20190216
